FAERS Safety Report 11302775 (Version 1)
Quarter: 2015Q3

REPORT INFORMATION
  Report Type: Spontaneous
  Country: US (occurrence: None)
  Receive Date: 20150723
  Receipt Date: 20150723
  Transmission Date: 20151125
  Serious: Yes (Disabling)
  Sender: FDA-Public Use
  Company Number: None

PATIENT
  Age: 42 Year
  Sex: Female
  Weight: 81.65 kg

DRUGS (5)
  1. PRILOSEC [Concomitant]
     Active Substance: OMEPRAZOLE MAGNESIUM
  2. VITAMIN D [Concomitant]
     Active Substance: CHOLECALCIFEROL
  3. VITAMIN C [Concomitant]
     Active Substance: ASCORBIC ACID
  4. CLINDAMYCIN HCL [Suspect]
     Active Substance: CLINDAMYCIN HYDROCHLORIDE
     Indication: PHARYNGITIS STREPTOCOCCAL
     Dosage: 1 EVERY 8 HOUR, EVERY 8 HOURS
     Dates: start: 20150717, end: 20150720
  5. CELEXA [Concomitant]
     Active Substance: CITALOPRAM HYDROBROMIDE

REACTIONS (7)
  - Impaired driving ability [None]
  - Photophobia [None]
  - Fatigue [None]
  - Insomnia [None]
  - Impaired work ability [None]
  - Asthenia [None]
  - Dizziness [None]

NARRATIVE: CASE EVENT DATE: 20150720
